FAERS Safety Report 10395815 (Version 1)
Quarter: 2014Q1

REPORT INFORMATION
  Report Type: Spontaneous
  Country: US (occurrence: None)
  Receive Date: 20130507
  Receipt Date: 20130507
  Transmission Date: 20141002
  Serious: Yes (Hospitalization)
  Sender: FDA-Public Use
  Company Number: PHEH2011US012229

PATIENT
  Age: 85 Year
  Sex: Male

DRUGS (3)
  1. TASIGNA (AMN107) CAPSULE [Suspect]
     Indication: CHRONIC MYELOID LEUKAEMIA
     Route: 048
     Dates: start: 20111122
  2. CELEBREX (CELECOXIB) [Concomitant]
  3. ASPIRIN ^BAYER^ (ACETYLSALICYLIC ACID) [Concomitant]

REACTIONS (4)
  - Rectal haemorrhage [None]
  - Sleep talking [None]
  - Myalgia [None]
  - Muscle spasms [None]
